FAERS Safety Report 9518693 (Version 2)
Quarter: 2013Q4

REPORT INFORMATION
  Report Type: Report from Study
  Country: AU (occurrence: AU)
  Receive Date: 20130912
  Receipt Date: 20131024
  Transmission Date: 20140711
  Serious: Yes (Death, Hospitalization)
  Sender: FDA-Public Use
  Company Number: PHHY2013AU100266

PATIENT
  Age: 83 Year
  Sex: Male

DRUGS (2)
  1. ACLASTA [Suspect]
     Dosage: 5 MG
     Route: 042
     Dates: start: 20111011
  2. ACLASTA [Suspect]
     Dosage: 5 MG
     Route: 042
     Dates: start: 20121015

REACTIONS (5)
  - Death [Fatal]
  - Sepsis [Unknown]
  - Fall [Unknown]
  - Tibia fracture [Unknown]
  - Aortic aneurysm rupture [Unknown]
